FAERS Safety Report 15789553 (Version 1)
Quarter: 2019Q1

REPORT INFORMATION
  Report Type: Spontaneous
  Country: US (occurrence: US)
  Receive Date: 20190104
  Receipt Date: 20190104
  Transmission Date: 20190417
  Serious: No
  Sender: FDA-Public Use
  Company Number: US-BEH-2018098086

PATIENT
  Age: 6 Year
  Sex: Female

DRUGS (9)
  1. ACETAMINOPHEN. [Concomitant]
     Active Substance: ACETAMINOPHEN
  2. HYDROXYZINE [Concomitant]
     Active Substance: HYDROXYZINE HYDROCHLORIDE
  3. TRIAMCINOLON                       /00031901/ [Concomitant]
  4. ALBUTEROL                          /00139501/ [Concomitant]
     Active Substance: ALBUTEROL
  5. HIZENTRA [Suspect]
     Active Substance: HUMAN IMMUNOGLOBULIN G
     Indication: IMMUNODEFICIENCY
     Dosage: UNK UNK, QW
     Route: 058
     Dates: start: 20150825
  6. MIRALAX [Concomitant]
     Active Substance: POLYETHYLENE GLYCOL 3350
  7. ALDARA [Concomitant]
     Active Substance: IMIQUIMOD
  8. HYDROCORT                          /00028602/ [Concomitant]
  9. MULTIVITAMINS WITH FLUORIDE        /02270601/ [Concomitant]

REACTIONS (1)
  - Infusion site extravasation [Not Recovered/Not Resolved]
